FAERS Safety Report 6686431-8 (Version None)
Quarter: 2010Q2

REPORT INFORMATION
  Report Type: 
  Country: None (occurrence: None)
  Receive Date: 20100419
  Receipt Date: 20100412
  Transmission Date: 20101027
  Serious: Yes (Death)
  Sender: FDA-Public Use
  Company Number: B0628308A

PATIENT
  Sex: Male

DRUGS (4)
  1. HYCAMTIN [Suspect]
     Dosage: 3MG PER DAY
     Route: 048
     Dates: start: 20100106
  2. PARACETAMOL [Concomitant]
     Indication: PAIN
     Dosage: 1G PER DAY
     Route: 048
  3. CITALOPRAM HYDROBROMIDE [Concomitant]
     Indication: DEPRESSION
     Dosage: 100MG PER DAY
     Route: 048
  4. TEMAZEPAM [Concomitant]
     Indication: INSOMNIA
     Dosage: 10MG PER DAY
     Route: 048

REACTIONS (12)
  - BLOOD CREATININE INCREASED [None]
  - BLOOD SODIUM DECREASED [None]
  - DEHYDRATION [None]
  - DIARRHOEA [None]
  - MALAISE [None]
  - NEUTROPENIA [None]
  - NEUTROPHIL COUNT DECREASED [None]
  - PLATELET COUNT DECREASED [None]
  - PYREXIA [None]
  - SEPSIS [None]
  - SMALL CELL LUNG CANCER STAGE UNSPECIFIED [None]
  - VOMITING [None]
